FAERS Safety Report 8403047-3 (Version None)
Quarter: 2012Q2

REPORT INFORMATION
  Report Type: 
  Country: None (occurrence: None)
  Receive Date: 20120601
  Receipt Date: 20120522
  Transmission Date: 20120825
  Serious: Yes (Death, Hospitalization, Other)
  Sender: FDA-Public Use
  Company Number: CO-ELI_LILLY_AND_COMPANY-CO201205002713

PATIENT
  Age: 84 Year
  Sex: Female

DRUGS (6)
  1. HYDROMORPHONE HCL [Concomitant]
  2. CALCIUM CARBONATE + VITAMIN D [Concomitant]
     Indication: SUPPLEMENTATION THERAPY
     Dosage: UNK UNK, QD
  3. SPIRONOLACTONE [Concomitant]
  4. FORTEO [Suspect]
     Indication: OSTEOPOROSIS
     Dosage: 20 UG, QD
     Route: 058
  5. LANITOP [Concomitant]
  6. ENALAPRIL MALEATE [Concomitant]

REACTIONS (3)
  - RESPIRATORY FAILURE [None]
  - DEATH [None]
  - THROMBOSIS [None]
